FAERS Safety Report 6369928-X (Version None)
Quarter: 2009Q3

REPORT INFORMATION
  Report Type: 
  Country: None (occurrence: None)
  Receive Date: 20090918
  Receipt Date: 20090910
  Transmission Date: 20100115
  Serious: Yes (Other)
  Sender: FDA-Public Use
  Company Number: 378142

PATIENT
  Age: 64 Year
  Sex: Male

DRUGS (1)
  1. MORPHINE [Suspect]
     Indication: POST HERPETIC NEURALGIA
     Dosage: INTRATHECAL, 1 MG, INTRAVENOUS BOLUS

REACTIONS (2)
  - CONSTIPATION [None]
  - HYPERHIDROSIS [None]
